FAERS Safety Report 4907106-9 (Version None)
Quarter: 2006Q1

REPORT INFORMATION
  Report Type: 
  Country: None (occurrence: None)
  Receive Date: 20060206
  Receipt Date: 20060124
  Transmission Date: 20060701
  Serious: Yes (Hospitalization)
  Sender: FDA-Public Use
  Company Number: 2005171900

PATIENT
  Age: 42 Year
  Sex: Female
  Weight: 63 kg

DRUGS (3)
  1. RELPAX [Suspect]
     Indication: MIGRAINE
     Dosage: 80 MG (40 MG, 2 IN 1 D),
  2. COFFEE (CAFFEINE) [Concomitant]
  3. ACETAMINOPHEN [Concomitant]

REACTIONS (7)
  - BLOOD PRESSURE DECREASED [None]
  - DEPRESSED LEVEL OF CONSCIOUSNESS [None]
  - FEELING DRUNK [None]
  - HYPOAESTHESIA [None]
  - LABILE BLOOD PRESSURE [None]
  - SPEECH DISORDER [None]
  - VISUAL DISTURBANCE [None]
